FAERS Safety Report 5497590-7 (Version None)
Quarter: 2007Q4

REPORT INFORMATION
  Report Type: 
  Country: None (occurrence: None)
  Receive Date: 20071025
  Receipt Date: 20061213
  Transmission Date: 20080405
  Serious: Yes (Other)
  Sender: FDA-Public Use
  Company Number: A0631435A

PATIENT
  Sex: Male

DRUGS (1)
  1. ADVAIR DISKUS 100/50 [Suspect]
     Indication: DRUG USE FOR UNKNOWN INDICATION
     Dosage: 1PUFF TWICE PER DAY
     Route: 055

REACTIONS (4)
  - ASTHMA [None]
  - CHEST PAIN [None]
  - MUSCULOSKELETAL PAIN [None]
  - THROAT IRRITATION [None]
